FAERS Safety Report 10947390 (Version 1)
Quarter: 2015Q1

REPORT INFORMATION
  Report Type: Spontaneous
  Country: US (occurrence: None)
  Receive Date: 20150218
  Receipt Date: 20150218
  Transmission Date: 20150721
  Serious: No
  Sender: FDA-Public Use
  Company Number: 2014FE03651

PATIENT
  Age: 56 Year
  Sex: Male
  Weight: 108.8 kg

DRUGS (3)
  1. PREPOPIK [Suspect]
     Active Substance: ANHYDROUS CITRIC ACID\MAGNESIUM OXIDE\SODIUM PICOSULFATE
     Indication: BOWEL PREPARATION
     Dosage: FIRST PACKET, 17:00 DAY PRIOR TO PROCEDURE, ONCE/SINGLE
     Route: 048
     Dates: start: 201412, end: 201412
  2. PRILOSEC (OMEPRAZOLE) [Concomitant]
     Active Substance: OMEPRAZOLE MAGNESIUM
  3. SYNTHROID [Concomitant]
     Active Substance: LEVOTHYROXINE SODIUM

REACTIONS (2)
  - Drug effect delayed [None]
  - Drug ineffective [None]

NARRATIVE: CASE EVENT DATE: 201412
